FAERS Safety Report 12215222 (Version 2)
Quarter: 2021Q3

REPORT INFORMATION
  Report Type: Report from Study
  Country: DE (occurrence: DE)
  Receive Date: 20160328
  Receipt Date: 20210924
  Transmission Date: 20211014
  Serious: Yes (Hospitalization)
  Sender: FDA-Public Use
  Company Number: DE-EMD SERONO-7278243

PATIENT
  Age: 14 Year
  Sex: Male
  Weight: 35 kg

DRUGS (3)
  1. SAIZEN [Suspect]
     Active Substance: SOMATROPIN
     Indication: GROWTH HORMONE DEFICIENCY
     Route: 058
     Dates: start: 20130827, end: 20140312
  2. HYDROCORTISON [HYDROCORTISONE] [Concomitant]
     Indication: RENAL FAILURE
     Dosage: 5?2, 5?2, 5MG
     Route: 048
     Dates: start: 20120301
  3. OCTREOTIDE. [Concomitant]
     Active Substance: OCTREOTIDE
     Indication: PROLACTIN-PRODUCING PITUITARY TUMOUR
     Dosage: 20MG/MONTH
     Route: 058
     Dates: start: 20140115, end: 20140115

REACTIONS (7)
  - Prolactin-producing pituitary tumour [Not Recovered/Not Resolved]
  - Asthenia [Not Recovered/Not Resolved]
  - Mental disorder [Not Recovered/Not Resolved]
  - Headache [Not Recovered/Not Resolved]
  - Visual acuity reduced [Not Recovered/Not Resolved]
  - Hemianopia [Not Recovered/Not Resolved]
  - Educational problem [Not Recovered/Not Resolved]

NARRATIVE: CASE EVENT DATE: 2014
